FAERS Safety Report 7645477-3 (Version None)
Quarter: 2011Q3

REPORT INFORMATION
  Report Type: 
  Country: None (occurrence: None)
  Receive Date: 20110729
  Receipt Date: 20110719
  Transmission Date: 20111222
  Serious: Yes (Life-Threatening, Hospitalization, Other)
  Sender: FDA-Public Use
  Company Number: CA-ELI_LILLY_AND_COMPANY-CA201107004957

PATIENT
  Sex: Male

DRUGS (12)
  1. TRIFLUOPERAZINE HCL [Concomitant]
  2. SEROQUEL [Concomitant]
  3. FLUANXOL [Concomitant]
  4. IMOVANE [Concomitant]
  5. OXAZEPAM [Concomitant]
  6. ZYPREXA [Suspect]
     Indication: SCHIZOPHRENIA
     Dosage: 5 MG, BID
     Dates: start: 19990730
  7. BENZTROPINE MESYLATE [Concomitant]
  8. LORAZEPAM [Concomitant]
  9. ZYPREXA [Suspect]
     Dosage: 10 MG, UNK
  10. RISPERDAL [Concomitant]
  11. ALTACE [Concomitant]
  12. CLONAZEPAM [Concomitant]

REACTIONS (15)
  - SLEEP APNOEA SYNDROME [None]
  - HYPERLIPIDAEMIA [None]
  - BLINDNESS [None]
  - INTENTIONAL OVERDOSE [None]
  - RENAL FAILURE [None]
  - DIABETES MELLITUS [None]
  - CORONARY ARTERY STENOSIS [None]
  - RESPIRATORY FAILURE [None]
  - MYOPATHY [None]
  - PNEUMONIA [None]
  - SEXUAL DYSFUNCTION [None]
  - BRADYCARDIA [None]
  - IMPAIRED HEALING [None]
  - ALTERED STATE OF CONSCIOUSNESS [None]
  - EPISTAXIS [None]
